FAERS Safety Report 8797781 (Version 3)
Quarter: 2012Q4

REPORT INFORMATION
  Report Type: 
  Country: GB (occurrence: GB)
  Receive Date: 20120919
  Receipt Date: 20121009
  Transmission Date: 20130627
  Serious: Yes (Other)
  Sender: FDA-Public Use
  Company Number: GB-ROCHE-1128670

PATIENT
  Sex: Female
  Weight: 130 kg

DRUGS (19)
  1. XOLAIR [Suspect]
     Indication: ASTHMA
     Route: 058
     Dates: start: 201110
  2. XOLAIR [Suspect]
     Route: 065
     Dates: start: 20120905, end: 20120905
  3. ADCAL [Concomitant]
  4. SALBUTAMOL [Concomitant]
     Route: 065
     Dates: start: 2011
  5. IPRATROPIUM BROMIDE [Concomitant]
     Route: 065
     Dates: start: 2011
  6. BUDESONIDE [Concomitant]
     Route: 065
     Dates: start: 2011
  7. PREDNISOLONE [Concomitant]
     Route: 065
     Dates: start: 2011
  8. PREDNISOLONE [Concomitant]
     Route: 065
     Dates: start: 20120509
  9. MONTELUKAST [Concomitant]
     Route: 065
     Dates: start: 20120509
  10. PHYLLOCONTIN [Concomitant]
  11. FEXOFENADINE [Concomitant]
  12. SERTRALINE [Concomitant]
  13. OMEPRAZOLE [Concomitant]
  14. FLUNARIZINE [Concomitant]
  15. CALCIUM CARBONATE [Concomitant]
  16. AMINOPHYLLINE HYDRATE [Concomitant]
  17. LEFLUNOMIDE [Concomitant]
  18. HYDROXYCHLOROQUINE [Concomitant]
  19. COLECALCIFEROL [Concomitant]

REACTIONS (2)
  - Anaphylactic reaction [Recovered/Resolved]
  - Skin reaction [Recovered/Resolved]
